FAERS Safety Report 15247485 (Version 1)
Quarter: 2018Q3

REPORT INFORMATION
  Report Type: Spontaneous
  Country: US (occurrence: US)
  Receive Date: 20180807
  Receipt Date: 20180807
  Transmission Date: 20181010
  Serious: No
  Sender: FDA-Public Use
  Company Number: US-TORRENT-00006144

PATIENT
  Age: 71 Year
  Sex: Male
  Weight: 84 kg

DRUGS (1)
  1. ISOSORBIDE MONONITRATE. [Suspect]
     Active Substance: ISOSORBIDE MONONITRATE
     Indication: ANGINA PECTORIS
     Dosage: UNKNOWN
     Dates: start: 20180208

REACTIONS (4)
  - Visual impairment [Unknown]
  - Back pain [Unknown]
  - Lacrimation increased [Unknown]
  - Headache [Unknown]

NARRATIVE: CASE EVENT DATE: 20180208
